FAERS Safety Report 13456071 (Version 3)
Quarter: 2017Q2

REPORT INFORMATION
  Report Type: Report from Study
  Country: US (occurrence: BR)
  Receive Date: 20170419
  Receipt Date: 20170518
  Transmission Date: 20170830
  Serious: Yes (Other)
  Sender: FDA-Public Use
  Company Number: US-SUNOVION-2017SUN001656

PATIENT
  Sex: Female
  Weight: 110 kg

DRUGS (1)
  1. INDACATEROL AND GLYCOPYRROLATE [Suspect]
     Active Substance: GLYCOPYRROLATE\INDACATEROL MALEATE
     Indication: FATIGUE
     Dosage: 1 DF (110MCG/50MCG), UNK
     Route: 055
     Dates: start: 20170329

REACTIONS (8)
  - Labyrinthitis [Unknown]
  - Dizziness [Unknown]
  - Malaise [Unknown]
  - Dyspnoea [Not Recovered/Not Resolved]
  - Product use issue [Unknown]
  - Weight increased [Unknown]
  - Body height decreased [Unknown]
  - Drug ineffective for unapproved indication [Unknown]
